FAERS Safety Report 18768420 (Version 1)
Quarter: 2021Q1

REPORT INFORMATION
  Report Type: Report from Study
  Country: JP (occurrence: JP)
  Receive Date: 20210121
  Receipt Date: 20210121
  Transmission Date: 20210419
  Serious: Yes (Death, Hospitalization)
  Sender: FDA-Public Use
  Company Number: JP-KYOWAKIRIN-2021AKK000797

PATIENT

DRUGS (39)
  1. ITRACONAZOLE. [Concomitant]
     Active Substance: ITRACONAZOLE
     Indication: INFECTION PROPHYLAXIS
     Dosage: UNK
     Route: 048
     Dates: start: 20161127, end: 20170117
  2. MAXIPIME [Concomitant]
     Active Substance: CEFEPIME HYDROCHLORIDE
     Indication: INFECTION PROPHYLAXIS
     Dosage: UNK
     Route: 065
     Dates: start: 20161203, end: 20170118
  3. UBIDECARENONE. [Concomitant]
     Active Substance: UBIDECARENONE
     Indication: PROPHYLAXIS
     Dosage: UNK
     Route: 048
     Dates: end: 20170117
  4. CELECOX [Concomitant]
     Active Substance: CELECOXIB
     Dosage: UNK
     Route: 048
     Dates: end: 20170118
  5. ELNEOPA NO.2 [Concomitant]
     Active Substance: AMINO ACIDS\DEXTROSE\ELECTROLYTES NOS\MINERALS\VITAMINS
     Dosage: UNK
     Route: 065
     Dates: start: 20170116, end: 20170118
  6. CHLORPHENIRAMINE MALEATE. [Concomitant]
     Active Substance: CHLORPHENIRAMINE MALEATE
     Dosage: UNK
     Route: 065
     Dates: start: 20161228, end: 20161228
  7. DEXART [Concomitant]
     Active Substance: DEXAMETHASONE SODIUM PHOSPHATE
     Dosage: 6.6 MG
     Route: 065
     Dates: start: 20161228, end: 20161228
  8. MIYA?BM [Concomitant]
     Active Substance: CLOSTRIDIUM BUTYRICUM SPORES STRAIN M-55
     Indication: PROPHYLAXIS
     Dosage: UNK
     Route: 048
     Dates: end: 20170115
  9. RABEPRAZOLE NA [Concomitant]
     Active Substance: RABEPRAZOLE SODIUM
     Indication: PROPHYLAXIS
     Dosage: UNK
     Route: 048
     Dates: end: 20170117
  10. PRIMPERAN [Concomitant]
     Active Substance: METOCLOPRAMIDE HYDROCHLORIDE
     Indication: VOMITING
     Dosage: UNK
     Route: 065
     Dates: start: 20161126, end: 20161126
  11. CHLORPHENIRAMINE MALEATE. [Concomitant]
     Active Substance: CHLORPHENIRAMINE MALEATE
     Indication: PROPHYLAXIS
     Dosage: UNK
     Route: 065
     Dates: start: 20161123, end: 20161123
  12. CEFDINIR. [Concomitant]
     Active Substance: CEFDINIR
     Indication: INFECTION PROPHYLAXIS
     Dosage: UNK
     Route: 048
     Dates: start: 20161214, end: 20161216
  13. DAIPHEN [Concomitant]
     Active Substance: SULFAMETHOXAZOLE\TRIMETHOPRIM
     Indication: INFECTION PROPHYLAXIS
     Dosage: UNK
     Route: 048
     Dates: start: 20161121, end: 20170117
  14. SENNOSIDE A+B CALCIUM [Concomitant]
     Active Substance: SENNOSIDES A AND B
     Indication: PROPHYLAXIS
     Dosage: UNK
     Route: 048
     Dates: start: 20161125, end: 20161211
  15. MAGNESIUM OXIDE. [Concomitant]
     Active Substance: MAGNESIUM OXIDE
     Indication: FAECAL MANAGEMENT
     Dosage: UNK
     Route: 048
     Dates: start: 20161125, end: 20170110
  16. LACTEC [Concomitant]
     Active Substance: CALCIUM CHLORIDE ANHYDROUS\POTASSIUM CHLORIDE\SODIUM CHLORIDE\SODIUM LACTATE
     Indication: PROPHYLAXIS
     Dosage: UNK
     Route: 065
     Dates: start: 20170113, end: 20170113
  17. FUNGUARD [Concomitant]
     Active Substance: MICAFUNGIN SODIUM
     Indication: INFECTION PROPHYLAXIS
     Dosage: UNK
     Route: 065
     Dates: start: 20161206, end: 20170118
  18. FILGRASTIM BS [FILGRASTIM BIOSIMILAR 1] [Concomitant]
     Indication: PROPHYLAXIS
     Dosage: UNK
     Route: 065
     Dates: start: 20161129, end: 20161209
  19. ADONA [CARBAZOCHROME SODIUM SULFONATE] [Concomitant]
     Active Substance: CARBAZOCHROME SODIUM SULFONATE
     Indication: MELAENA
     Dosage: UNK
     Route: 065
     Dates: start: 20170113, end: 20170114
  20. FUROSEMIDE. [Concomitant]
     Active Substance: FUROSEMIDE
     Dosage: UNK
     Route: 065
     Dates: start: 20161123, end: 20170118
  21. CEFTRIAXONE SODIUM HYDRATE [Concomitant]
     Active Substance: CEFTRIAXONE SODIUM
     Indication: INFECTION PROPHYLAXIS
     Dosage: UNK
     Route: 065
     Dates: start: 20170113, end: 20170117
  22. AMLODIPINE [Concomitant]
     Active Substance: AMLODIPINE BESYLATE
     Dosage: UNK
     Route: 048
     Dates: end: 20170110
  23. ALFACALCIDOL [Concomitant]
     Active Substance: ALFACALCIDOL
     Dosage: UNK
     Route: 048
     Dates: end: 20170117
  24. THYRADIN?S [Concomitant]
     Active Substance: LEVOTHYROXINE
     Dosage: UNK
     Route: 048
     Dates: end: 20170117
  25. ETIZOLAM [Concomitant]
     Active Substance: ETIZOLAM
     Indication: INSOMNIA
     Dosage: UNK
     Route: 048
     Dates: start: 20161208, end: 20170110
  26. SAMSCA [Concomitant]
     Active Substance: TOLVAPTAN
     Indication: ABDOMINAL DISTENSION
     Dosage: UNK
     Route: 048
     Dates: start: 20161201, end: 20170118
  27. SAXIZON [Concomitant]
     Active Substance: HYDROCORTISONE SODIUM SUCCINATE
     Indication: PROPHYLAXIS
     Dosage: UNK
     Route: 065
     Dates: start: 20161201, end: 20170113
  28. MOGAMULIZUMAB [Suspect]
     Active Substance: MOGAMULIZUMAB
     Dosage: 1 MG/KG
     Route: 041
     Dates: start: 20161123, end: 20161123
  29. PREDONINE [Concomitant]
     Active Substance: PREDNISOLONE
     Dosage: UNK
     Route: 048
     Dates: end: 20170117
  30. FEBURIC [Concomitant]
     Active Substance: FEBUXOSTAT
     Indication: PROPHYLAXIS
     Dosage: UNK
     Route: 048
     Dates: end: 20170117
  31. FUROSEMIDE. [Concomitant]
     Active Substance: FUROSEMIDE
     Dosage: UNK
     Route: 048
     Dates: start: 20161201, end: 20170117
  32. ISCOTIN [Concomitant]
     Active Substance: ISONIAZID
     Indication: INFECTION PROPHYLAXIS
     Dosage: UNK
     Route: 048
     Dates: start: 20161121, end: 20170117
  33. ELNEOPA NO.2 [Concomitant]
     Active Substance: AMINO ACIDS\DEXTROSE\ELECTROLYTES NOS\MINERALS\VITAMINS
     Indication: NOTHING BY MOUTH ORDER
     Dosage: UNK
     Route: 065
     Dates: start: 20170115, end: 20170115
  34. SOLDEM 3A [Concomitant]
     Active Substance: CARBOHYDRATES\POTASSIUM CHLORIDE\SODIUM CHLORIDE\SODIUM LACTATE
     Indication: NOTHING BY MOUTH ORDER
     Dosage: UNK
     Route: 065
     Dates: start: 20170114, end: 20170115
  35. BFLUID [Concomitant]
     Active Substance: AMINO ACIDS\DEXTROSE\ELECTROLYTES NOS\VITAMINS
     Indication: HYPOPHAGIA
     Dosage: UNK
     Route: 065
     Dates: start: 20161229, end: 20170115
  36. MOGAMULIZUMAB [Suspect]
     Active Substance: MOGAMULIZUMAB
     Indication: ADULT T-CELL LYMPHOMA/LEUKAEMIA
     Dosage: 1 MG/KG
     Route: 041
     Dates: start: 20161228, end: 20161228
  37. DEXART [Concomitant]
     Active Substance: DEXAMETHASONE SODIUM PHOSPHATE
     Indication: PROPHYLAXIS
     Dosage: 6.6 MG
     Route: 065
     Dates: start: 20161123, end: 20161123
  38. FLUCONAZOLE. [Concomitant]
     Active Substance: FLUCONAZOLE
     Indication: INFECTION PROPHYLAXIS
     Dosage: UNK
     Route: 048
     Dates: start: 20161121, end: 20161126
  39. LOXOPROFEN [Concomitant]
     Active Substance: LOXOPROFEN
     Indication: ABDOMINAL PAIN
     Dosage: UNK
     Route: 048
     Dates: start: 20161201, end: 20161219

REACTIONS (10)
  - Anal erosion [Not Recovered/Not Resolved]
  - Diarrhoea [Recovered/Resolved]
  - White blood cell count decreased [Recovered/Resolved]
  - Platelet count decreased [Recovered/Resolved]
  - Abdominal pain [Not Recovered/Not Resolved]
  - Infusion related reaction [Recovered/Resolved]
  - Infusion related reaction [Fatal]
  - Abdominal distension [Not Recovered/Not Resolved]
  - White blood cell count increased [Recovered/Resolved]
  - Infusion related reaction [Recovered/Resolved]

NARRATIVE: CASE EVENT DATE: 20161126
